FAERS Safety Report 24816034 (Version 1)
Quarter: 2025Q1

REPORT INFORMATION
  Report Type: Spontaneous
  Country: US (occurrence: US)
  Receive Date: 20250107
  Receipt Date: 20250107
  Transmission Date: 20250409
  Serious: Yes (Life-Threatening, Hospitalization)
  Sender: DR REDDYS
  Company Number: None

PATIENT
  Age: 47 Year
  Sex: Male

DRUGS (1)
  1. LEVETIRACETAM [Suspect]
     Active Substance: LEVETIRACETAM
     Indication: Seizure
     Dosage: INITIAL LOADING DOSE BEFORE TITRATING UP TO A DOSE OF 1 G EVERY 12 HOURS PER NEUROLOGY RECOMMENDATIO
     Route: 048

REACTIONS (1)
  - Acute kidney injury [Recovering/Resolving]
